FAERS Safety Report 7027014-X (Version None)
Quarter: 2010Q4

REPORT INFORMATION
  Report Type: 
  Country: None (occurrence: None)
  Receive Date: 20101004
  Receipt Date: 20100922
  Transmission Date: 20110411
  Serious: Yes (Death)
  Sender: FDA-Public Use
  Company Number: DE-WYE-H17879610

PATIENT
  Sex: Male
  Weight: 67 kg

DRUGS (3)
  1. SIROLIMUS [Suspect]
     Indication: CHRONIC GRAFT VERSUS HOST DISEASE
     Dosage: DOSE VARYING, APPROXIMATELY 1.5 MG/DAY - ADJUSTED TO DRUG LEVEL (TARGET LEVEL 3-8 NG/ML)
     Dates: start: 20060120
  2. SIROLIMUS [Suspect]
     Indication: SCLERODERMA
  3. SIROLIMUS [Suspect]
     Indication: IMMUNOSUPPRESSION

REACTIONS (1)
  - SUDDEN DEATH [None]
